FAERS Safety Report 23108758 (Version 1)
Quarter: 2023Q4

REPORT INFORMATION
  Report Type: Spontaneous
  Country: US (occurrence: None)
  Receive Date: 20231025
  Receipt Date: 20231025
  Transmission Date: 20240109
  Serious: No
  Sender: FDA-Public Use
  Company Number: None

PATIENT
  Age: 56 Year
  Sex: Female
  Weight: 81 kg

DRUGS (2)
  1. VALACYCLOVIR [Suspect]
     Active Substance: VALACYCLOVIR HYDROCHLORIDE
  2. Estrogen cream [Concomitant]

REACTIONS (3)
  - Product dispensing error [None]
  - Adverse event [None]
  - Victim of abuse [None]

NARRATIVE: CASE EVENT DATE: 20231015
